FAERS Safety Report 13659545 (Version 1)
Quarter: 2017Q2

REPORT INFORMATION
  Report Type: Spontaneous
  Country: US (occurrence: US)
  Receive Date: 20170616
  Receipt Date: 20170616
  Transmission Date: 20170830
  Serious: Yes (Hospitalization)
  Sender: FDA-Public Use
  Company Number: None

PATIENT
  Age: 51 Year
  Sex: Female
  Weight: 58.4 kg

DRUGS (10)
  1. CULTURELLE [Concomitant]
     Active Substance: LACTOBACILLUS RHAMNOSUS
  2. MACRODANTIN [Concomitant]
     Active Substance: NITROFURANTOIN
  3. WARFARIN [Suspect]
     Active Substance: WARFARIN
     Indication: CEREBRAL VENOUS THROMBOSIS
     Dosage: 10MG Q MONDAY PO
     Route: 048
  4. WARFARIN [Suspect]
     Active Substance: WARFARIN
     Indication: PORTAL VEIN THROMBOSIS
     Dosage: 10MG Q MONDAY PO
     Route: 048
  5. APRISO [Concomitant]
     Active Substance: MESALAMINE
  6. CANASA [Concomitant]
     Active Substance: MESALAMINE
  7. MVI [Concomitant]
     Active Substance: VITAMINS
  8. WARFARIN [Suspect]
     Active Substance: WARFARIN
     Indication: THROMBOSIS
     Dosage: 10MG Q MONDAY PO
     Route: 048
  9. VITD3 [Concomitant]
  10. FE [Concomitant]
     Active Substance: IRON

REACTIONS (6)
  - Haemorrhagic anaemia [None]
  - Anticoagulation drug level above therapeutic [None]
  - Haemorrhoids [None]
  - Thrombosis [None]
  - Colitis ulcerative [None]
  - Condition aggravated [None]

NARRATIVE: CASE EVENT DATE: 20160404
